FAERS Safety Report 9839927 (Version 1)
Quarter: 2013Q4

REPORT INFORMATION
  Report Type: Spontaneous
  Country: US (occurrence: None)
  Receive Date: 20131211
  Receipt Date: 20131211
  Transmission Date: 20140711
  Serious: Yes (Hospitalization)
  Sender: FDA-Public Use
  Company Number: ALL1-2013-00392

PATIENT
  Age: 48 Year
  Sex: Female
  Weight: 99.3 kg

DRUGS (3)
  1. FIRAZYR [Suspect]
     Indication: HEREDITARY ANGIOEDEMA
     Dates: start: 20130106, end: 20130106
  2. KALBITOR [Suspect]
     Dosage: AS REQ^D.
     Dates: start: 201102
  3. CINRYZE (COMPLEMENT C1 ESTERASE INHIBITOR) [Concomitant]

REACTIONS (1)
  - Drug ineffective [None]
